FAERS Safety Report 21980749 (Version 1)
Quarter: 2023Q1

REPORT INFORMATION
  Report Type: Spontaneous
  Country: US (occurrence: US)
  Receive Date: 20230211
  Receipt Date: 20230211
  Transmission Date: 20230418
  Serious: No
  Sender: FDA-Public Use
  Company Number: US-GSK-US2023015543

PATIENT
  Age: 47 Year
  Sex: Female
  Weight: 93.44 kg

DRUGS (3)
  1. BENLYSTA [Suspect]
     Active Substance: BELIMUMAB
     Indication: Product used for unknown indication
     Dosage: UNK
     Dates: start: 20230111
  2. INULIN [Concomitant]
     Active Substance: INULIN
     Indication: Cutaneous sarcoidosis
     Dosage: 50 ML
  3. HYDROXYCHLOROQUINE [Concomitant]
     Active Substance: HYDROXYCHLOROQUINE
     Indication: Cutaneous sarcoidosis
     Dosage: 200 ML, BID,,2 ( 200 MIL ) PER DAY

REACTIONS (2)
  - Adverse drug reaction [Unknown]
  - Product dose omission issue [Not Recovered/Not Resolved]

NARRATIVE: CASE EVENT DATE: 20230118
